FAERS Safety Report 9057274 (Version 1)
Quarter: 2013Q1

REPORT INFORMATION
  Report Type: Report from Study
  Country: JP (occurrence: JP)
  Receive Date: 20130131
  Receipt Date: 20130131
  Transmission Date: 20140127
  Serious: Yes (Other)
  Sender: FDA-Public Use
  Company Number: JP-GLAXOSMITHKLINE-B0860322A

PATIENT
  Age: 64 None
  Sex: Female
  Weight: 42 kg

DRUGS (7)
  1. TYKERB [Suspect]
     Indication: BREAST CANCER
     Route: 048
     Dates: start: 20100827
  2. XELODA [Suspect]
     Route: 048
     Dates: start: 20100827
  3. XELODA [Suspect]
     Route: 048
     Dates: start: 201107
  4. LOPEMIN [Concomitant]
     Indication: PROPHYLAXIS AGAINST DIARRHOEA
     Route: 048
     Dates: start: 20100827, end: 20100917
  5. PREDONINE [Concomitant]
     Indication: BRAIN OEDEMA
     Route: 048
  6. OMEPRAL [Concomitant]
     Indication: GASTROOESOPHAGEAL REFLUX DISEASE
     Route: 048
  7. NAUZELIN [Concomitant]
     Indication: PROPHYLAXIS
     Route: 048
     Dates: end: 20101228

REACTIONS (5)
  - Candida infection [Not Recovered/Not Resolved]
  - Stomatitis [Recovering/Resolving]
  - Pruritus [Recovering/Resolving]
  - Paronychia [Recovered/Resolved]
  - Pruritus [Recovering/Resolving]
